FAERS Safety Report 19552709 (Version 1)
Quarter: 2021Q3

REPORT INFORMATION
  Report Type: Spontaneous
  Country: US (occurrence: US)
  Receive Date: 20210714
  Receipt Date: 20210714
  Transmission Date: 20211014
  Serious: No
  Sender: FDA-Public Use
  Company Number: US-SA-2021SA227967

PATIENT
  Age: 59 Year
  Sex: Female

DRUGS (1)
  1. DUPIXENT [Suspect]
     Active Substance: DUPILUMAB
     Indication: DERMATITIS ATOPIC
     Dosage: 300 MG, QOW
     Route: 058
     Dates: start: 20200904

REACTIONS (8)
  - Skin discolouration [Unknown]
  - Eyelid rash [Unknown]
  - Periorbital swelling [Unknown]
  - Conjunctivitis [Unknown]
  - Eye discharge [Unknown]
  - Ocular hyperaemia [Unknown]
  - Rash [Unknown]
  - Ocular discomfort [Unknown]

NARRATIVE: CASE EVENT DATE: 20210706
